FAERS Safety Report 4861831-7 (Version None)
Quarter: 2005Q4

REPORT INFORMATION
  Report Type: 
  Country: None (occurrence: None)
  Receive Date: 20051129
  Receipt Date: 20050609
  Transmission Date: 20060501
  Serious: Yes (Life-Threatening, Hospitalization, Other)
  Sender: FDA-Public Use
  Company Number: WAES 0506USA01605

PATIENT
  Age: 69 Year
  Sex: Female
  Weight: 52.1637 kg

DRUGS (2)
  1. FOSAMAX [Suspect]
     Dosage: 10 MG/PO; 70 MG/WKY/PO
     Route: 048
     Dates: start: 19990301, end: 20020501
  2. FOSAMAX [Suspect]
     Dosage: 10 MG/PO; 70 MG/WKY/PO
     Route: 048
     Dates: start: 20020501, end: 20050501

REACTIONS (2)
  - DRUG ADMINISTRATION ERROR [None]
  - OESOPHAGEAL ULCER HAEMORRHAGE [None]
